FAERS Safety Report 4412892-0 (Version None)
Quarter: 2004Q3

REPORT INFORMATION
  Report Type: 
  Country: None (occurrence: None)
  Receive Date: 20040730
  Receipt Date: 20040730
  Transmission Date: 20050211
  Serious: Yes (Other)
  Sender: FDA-Public Use
  Company Number: None

PATIENT
  Age: 75 Year
  Sex: Male
  Weight: 81.1939 kg

DRUGS (17)
  1. SPIRONOLACTONE [Suspect]
     Indication: HEPATIC CIRRHOSIS
     Dosage: 25 MG PO BID
     Route: 048
     Dates: start: 20031106, end: 20040409
  2. SPIRONOLACTONE [Suspect]
     Indication: HYPERTENSION
     Dosage: 25 MG PO BID
     Route: 048
     Dates: start: 20031106, end: 20040409
  3. ENALAPRIL MALEATE [Suspect]
     Indication: CARDIAC FAILURE CONGESTIVE
     Dosage: 2.5 MG DAILY [ THEN RESTARTED]
     Dates: start: 20031106, end: 20040409
  4. ENALAPRIL MALEATE [Suspect]
     Indication: HYPERTENSION
     Dosage: 2.5 MG DAILY [ THEN RESTARTED]
     Dates: start: 20031106, end: 20040409
  5. HUMULIN N [Concomitant]
  6. INSULIN REG HIMAN [Concomitant]
  7. BUMETANIDE [Concomitant]
  8. ISOSORBIDE MONONITRATE [Concomitant]
  9. FINASTERIDE [Concomitant]
  10. GEMFIBROZIL [Concomitant]
  11. CARVEDILOL [Concomitant]
  12. TERAZOSIN HCL [Concomitant]
  13. LANOXIN [Concomitant]
  14. COLCHICINE [Concomitant]
  15. IRON POLYSACCHARIDE COMPLEX [Concomitant]
  16. ACCU-CHECK COMFORT CV (GLUCOSE) TEST STRIP [Concomitant]
  17. DOCUSATE CA [Concomitant]

REACTIONS (1)
  - BLOOD POTASSIUM INCREASED [None]
